FAERS Safety Report 6030543-9 (Version None)
Quarter: 2009Q1

REPORT INFORMATION
  Report Type: 
  Country: None (occurrence: None)
  Receive Date: 20090106
  Receipt Date: 20090106
  Transmission Date: 20090719
  Serious: Yes (Other)
  Sender: FDA-Public Use
  Company Number: None

PATIENT
  Age: 20 Year
  Sex: Male
  Weight: 73.4827 kg

DRUGS (1)
  1. NIACIN [Suspect]
     Dosage: 100 MG FIRST TIME PO
     Route: 048
     Dates: start: 20080101, end: 20080102

REACTIONS (9)
  - ANXIETY [None]
  - DIZZINESS [None]
  - FEAR [None]
  - FEELING HOT [None]
  - FLUSHING [None]
  - HEAD DISCOMFORT [None]
  - PANIC ATTACK [None]
  - PRURITUS [None]
  - VISION BLURRED [None]
